FAERS Safety Report 5907295-3 (Version None)
Quarter: 2008Q4

REPORT INFORMATION
  Report Type: 
  Country: None (occurrence: None)
  Receive Date: 20081003
  Receipt Date: 20080924
  Transmission Date: 20090506
  Serious: Yes (Other)
  Sender: FDA-Public Use
  Company Number: US-AMGEN-US310835

PATIENT
  Sex: Female

DRUGS (1)
  1. ENBREL [Suspect]
     Route: 064
     Dates: start: 20030925

REACTIONS (1)
  - PREMATURE BABY [None]
